FAERS Safety Report 13757438 (Version 2)
Quarter: 2018Q1

REPORT INFORMATION
  Report Type: Report from Study
  Country: US (occurrence: US)
  Receive Date: 20170716
  Receipt Date: 20180214
  Transmission Date: 20180508
  Serious: Yes (Other)
  Sender: FDA-Public Use
  Company Number: PHEH2017US021377

PATIENT
  Age: 4 Year
  Sex: Female

DRUGS (1)
  1. AFINITOR [Suspect]
     Active Substance: EVEROLIMUS
     Indication: ASTROCYTOMA, LOW GRADE
     Dosage: 2 MG, QD
     Route: 048
     Dates: start: 20170420

REACTIONS (4)
  - Malaise [Unknown]
  - Oral mucosal blistering [Unknown]
  - Bronchitis [Unknown]
  - Disease progression [Unknown]

NARRATIVE: CASE EVENT DATE: 20170626
